FAERS Safety Report 24461621 (Version 1)
Quarter: 2024Q4

REPORT INFORMATION
  Report Type: Spontaneous
  Country: US (occurrence: US)
  Receive Date: 20241018
  Receipt Date: 20241018
  Transmission Date: 20250115
  Serious: No
  Sender: ROCHE
  Company Number: US-ROCHE-3564913

PATIENT
  Age: 44 Year
  Sex: Female

DRUGS (14)
  1. RITUXIMAB [Suspect]
     Active Substance: RITUXIMAB
     Indication: Mantle cell lymphoma stage IV
     Route: 065
  2. IBRUTINIB [Suspect]
     Active Substance: IBRUTINIB
     Indication: Mantle cell lymphoma stage IV
     Route: 065
  3. BREXUCABTAGENE AUTOLEUCEL [Concomitant]
     Active Substance: BREXUCABTAGENE AUTOLEUCEL
  4. OFATUMUMAB [Concomitant]
     Active Substance: OFATUMUMAB
  5. CYCLOPHOSPHAMIDE [Concomitant]
     Active Substance: CYCLOPHOSPHAMIDE
  6. VINCRISTINE [Concomitant]
     Active Substance: VINCRISTINE
  7. DOXORUBICIN [Concomitant]
     Active Substance: DOXORUBICIN
  8. DEXAMETHASONE [Concomitant]
     Active Substance: DEXAMETHASONE
  9. CYTARABINE [Concomitant]
     Active Substance: CYTARABINE
  10. CISPLATIN [Concomitant]
     Active Substance: CISPLATIN
  11. CARBOPLATIN [Concomitant]
     Active Substance: CARBOPLATIN
  12. ZANUBRUTINIB [Concomitant]
     Active Substance: ZANUBRUTINIB
  13. METHOTREXATE [Concomitant]
     Active Substance: METHOTREXATE
  14. VENETOCLAX [Concomitant]
     Active Substance: VENETOCLAX

REACTIONS (2)
  - Disease progression [Unknown]
  - Anaemia [Unknown]
